FAERS Safety Report 4613336-6 (Version None)
Quarter: 2005Q1

REPORT INFORMATION
  Report Type: 
  Country: None (occurrence: None)
  Receive Date: 20050316
  Receipt Date: 20050308
  Transmission Date: 20050727
  Serious: Yes (Hospitalization, Other)
  Sender: FDA-Public Use
  Company Number: 2005017419

PATIENT
  Age: 59 Year
  Sex: Male
  Weight: 80 kg

DRUGS (9)
  1. TAHOR (ATORVASTATIN) [Suspect]
     Indication: HYPERCHOLESTEROLAEMIA
     Dosage: 20 MG (20 MG, 1 IN 1 D), ORAL
     Route: 048
     Dates: start: 20000101, end: 20050101
  2. MESALAMINE [Suspect]
     Indication: COLITIS ULCERATIVE
     Dosage: 1500 MG (500 MG, 3 IN 1 D), ORAL
     Route: 048
     Dates: start: 20000101, end: 20050101
  3. DIGOXIN [Concomitant]
  4. ACE INHIBITOR NOS (ACE INHIBITOR NOS) [Concomitant]
  5. FUROSEMIDE [Concomitant]
  6. FLUINDIONE (FLUINDIONE) [Concomitant]
  7. GLICLAZIDE (GLICLAZIDE) [Concomitant]
  8. LISINOPRIL [Concomitant]
  9. PROPAFENONE HCL [Concomitant]

REACTIONS (2)
  - DRUG INTERACTION [None]
  - PANCREATITIS ACUTE [None]
